FAERS Safety Report 5570154-2 (Version None)
Quarter: 2007Q4

REPORT INFORMATION
  Report Type: 
  Country: None (occurrence: None)
  Receive Date: 20071217
  Receipt Date: 20071129
  Transmission Date: 20080405
  Serious: Yes (Other)
  Sender: FDA-Public Use
  Company Number: ACO_00409_2007

PATIENT
  Age: 67 Year
  Sex: Female

DRUGS (1)
  1. TIZANIDINE HYDROCHLORIDE [Suspect]
     Indication: BACK PAIN
     Dosage: (2 MG 1X)

REACTIONS (6)
  - ASTHENIA [None]
  - BACK PAIN [None]
  - BLOOD PRESSURE DECREASED [None]
  - DECREASED ACTIVITY [None]
  - LOSS OF CONSCIOUSNESS [None]
  - NASOPHARYNGITIS [None]
